FAERS Safety Report 9686347 (Version 1)
Quarter: 2013Q4

REPORT INFORMATION
  Report Type: Spontaneous
  Country: GB (occurrence: GB)
  Receive Date: 20131113
  Receipt Date: 20131113
  Transmission Date: 20140711
  Serious: Yes (Other)
  Sender: FDA-Public Use
  Company Number: GB-TEVA-443531ISR

PATIENT
  Age: 78 Year
  Sex: Female

DRUGS (5)
  1. PRAVASTATIN [Suspect]
     Indication: DRUG ERUPTION
     Dosage: STARTED IN HOSPITAL
     Route: 048
     Dates: start: 201211
  2. BISOPROLOL [Suspect]
     Dosage: STARTED IN HOPSITAL
     Route: 048
     Dates: start: 201211
  3. PRADAXA [Suspect]
     Indication: CEREBROVASCULAR ACCIDENT
     Dosage: 220 MILLIGRAM DAILY; STOPPED WHEN PATIENT IN HOSPITAL
     Route: 048
     Dates: start: 201212
  4. AMLODIPINE [Concomitant]
     Indication: HYPERTENSION
     Dosage: CONTINUING
     Route: 048
     Dates: start: 201103
  5. CLOPIDOGREL [Concomitant]
     Dosage: STARTED IN HOSPITAL
     Route: 048
     Dates: end: 2012

REACTIONS (2)
  - Raynaud^s phenomenon [Not Recovered/Not Resolved]
  - Erythema [Not Recovered/Not Resolved]
